FAERS Safety Report 8312247-2 (Version None)
Quarter: 2012Q2

REPORT INFORMATION
  Report Type: 
  Country: None (occurrence: None)
  Receive Date: 20120425
  Receipt Date: 20120416
  Transmission Date: 20120825
  Serious: Yes (Congenital Anomaly)
  Sender: FDA-Public Use
  Company Number: NO-ABBOTT-12P-122-0926540-00

PATIENT

DRUGS (1)
  1. HUMIRA [Suspect]
     Indication: MATERNAL EXPOSURE TIMING UNSPECIFIED
     Route: 064

REACTIONS (4)
  - BRAIN INJURY [None]
  - EPILEPSY [None]
  - FOETAL DISORDER [None]
  - FOETAL EXPOSURE DURING PREGNANCY [None]
